FAERS Safety Report 14172633 (Version 1)
Quarter: 2017Q4

REPORT INFORMATION
  Report Type: Spontaneous
  Country: US (occurrence: US)
  Receive Date: 20171108
  Receipt Date: 20171108
  Transmission Date: 20180321
  Serious: Yes (Hospitalization, Disabling, Other)
  Sender: FDA-Public Use
  Company Number: None

PATIENT
  Sex: Female
  Weight: 63.9 kg

DRUGS (7)
  1. AMOXICILLAN [Concomitant]
     Active Substance: AMOXICILLIN
  2. BETAMETHASONE DIPROPIONATE. [Suspect]
     Active Substance: BETAMETHASONE DIPROPIONATE
     Indication: ECZEMA
     Dosage: ?          QUANTITY:1 THIN FILM;?
     Route: 061
  3. WHEAT. [Concomitant]
     Active Substance: WHEAT
  4. TREE NUTS [Concomitant]
  5. LATEX [Concomitant]
     Active Substance: NATURAL LATEX RUBBER
  6. CATS [Concomitant]
  7. FISH [Concomitant]
     Active Substance: FISH

REACTIONS (1)
  - Steroid withdrawal syndrome [None]

NARRATIVE: CASE EVENT DATE: 20120607
